FAERS Safety Report 6835814-1 (Version None)
Quarter: 2010Q3

REPORT INFORMATION
  Report Type: 
  Country: None (occurrence: None)
  Receive Date: 20100712
  Receipt Date: 20100712
  Transmission Date: 20110219
  Serious: No
  Sender: FDA-Public Use
  Company Number: None

PATIENT
  Age: 62 Year
  Sex: Female
  Weight: 88.4514 kg

DRUGS (1)
  1. FEMARA [Suspect]
     Indication: BREAST CANCER
     Dosage: DAILY
     Dates: start: 20080604, end: 20090123

REACTIONS (4)
  - IMPAIRED WORK ABILITY [None]
  - MOBILITY DECREASED [None]
  - PAIN [None]
  - QUALITY OF LIFE DECREASED [None]
